FAERS Safety Report 7930704-5 (Version None)
Quarter: 2011Q4

REPORT INFORMATION
  Report Type: 
  Country: None (occurrence: None)
  Receive Date: 20111117
  Receipt Date: 20111103
  Transmission Date: 20120403
  Serious: Yes (Other)
  Sender: FDA-Public Use
  Company Number: 1103749

PATIENT
  Age: 52 Year
  Sex: Female

DRUGS (15)
  1. CYCLOPHOSPHAMIDE [Suspect]
     Indication: ADULT T-CELL LYMPHOMA/LEUKAEMIA
     Dosage: 300 MG/M^2, INTRAVENOUS (NOT OTHERWISE SPECIFIED)
     Route: 042
  2. FLUCONAZOLE [Concomitant]
  3. (ALEMTUZUMAB) [Suspect]
     Indication: ADULT T-CELL LYMPHOMA/LEUKAEMIA
     Dosage: 30 MG, SUBCUTANEOUS
     Route: 058
  4. CYTARABINE [Suspect]
     Indication: ADULT T-CELL LYMPHOMA/LEUKAEMIA
     Dosage: 100 MG, INTRATHECAL, 3 G/M^2 TWICE A DAY
     Route: 037
  5. VINCRISTINE SULFATE [Suspect]
     Indication: ADULT T-CELL LYMPHOMA/LEUKAEMIA
     Dosage: 1.4 MG/M^2 INTRAVENOUS BOLUS
     Route: 040
  6. MESNA [Concomitant]
  7. METHOTREXATE [Suspect]
     Indication: ADULT T-CELL LYMPHOMA/LEUKAEMIA
     Dosage: 12 MG, INTRATHECAL, 200 MG/M^2, 800 MG/M^2
     Route: 037
  8. DOXORUBICIN HCL [Suspect]
     Indication: ADULT T-CELL LYMPHOMA/LEUKAEMIA
     Dosage: 50 MG/M^2
  9. (DIPHENHYDRAZMINE) [Concomitant]
  10. (SULFAMETHOXAZOLE AND TRIMETHOPRIM) [Concomitant]
  11. LEUCOVORIN CALCIUM [Concomitant]
  12. ACYCLOVIR [Concomitant]
  13. (FILGRASTIM) [Concomitant]
  14. DEXAMETHASONE [Suspect]
     Indication: ADULT T-CELL LYMPHOMA/LEUKAEMIA
     Dosage: 40 MG/DAY, INTRAVENOUS (NOT OTHERWISE SPECIFIED)
     Route: 042
  15. ACETAMINOPHEN [Suspect]

REACTIONS (1)
  - NEUTROPENIA [None]
